FAERS Safety Report 7257832-4 (Version None)
Quarter: 2011Q1

REPORT INFORMATION
  Report Type: 
  Country: None (occurrence: None)
  Receive Date: 20110129
  Receipt Date: 20100527
  Transmission Date: 20110831
  Serious: No
  Sender: FDA-Public Use
  Company Number: US-ABBOTT-10P-163-0642605-00

PATIENT
  Sex: Female

DRUGS (8)
  1. HUMIRA [Suspect]
     Dates: start: 20100428
  2. TRAMODOL [Concomitant]
  3. ESTRACE [Concomitant]
  4. POTASSIUM [Concomitant]
  5. SYNTHROID [Concomitant]
  6. HUMIRA [Suspect]
     Indication: RHEUMATOID ARTHRITIS
     Dates: end: 20100422
  7. VALIUM [Concomitant]
  8. PLAQUENIL [Concomitant]

REACTIONS (4)
  - HOT FLUSH [None]
  - HYPERTENSION [None]
  - DRUG INEFFECTIVE [None]
  - NERVOUSNESS [None]
